FAERS Safety Report 25730528 (Version 1)
Quarter: 2025Q3

REPORT INFORMATION
  Report Type: Spontaneous
  Country: US (occurrence: US)
  Receive Date: 20250827
  Receipt Date: 20250827
  Transmission Date: 20251020
  Serious: No
  Sender: ALEXION PHARMACEUTICALS
  Company Number: US-AstraZeneca-CH-00937271AP

PATIENT
  Age: 63 Year
  Sex: Female

DRUGS (2)
  1. FASENRA [Suspect]
     Active Substance: BENRALIZUMAB
     Route: 065
  2. FASENRA [Suspect]
     Active Substance: BENRALIZUMAB

REACTIONS (5)
  - Injection site pain [Unknown]
  - Inadvertent injection air bubble [Unknown]
  - Drug dose omission by device [Unknown]
  - Product dose omission issue [Unknown]
  - Liquid product physical issue [Unknown]

NARRATIVE: CASE EVENT DATE: 20250822
